FAERS Safety Report 6534134-2 (Version None)
Quarter: 2010Q1

REPORT INFORMATION
  Report Type: 
  Country: None (occurrence: None)
  Receive Date: 20100112
  Receipt Date: 20100108
  Transmission Date: 20100710
  Serious: Yes (Other)
  Sender: FDA-Public Use
  Company Number: CHNY2009DE03573

PATIENT

DRUGS (1)
  1. VOLTAREN [Suspect]
     Dosage: UNK
     Route: 061
     Dates: start: 20091001, end: 20091001

REACTIONS (2)
  - PRURITUS [None]
  - URTICARIA [None]
